FAERS Safety Report 7746103-5 (Version None)
Quarter: 2011Q3

REPORT INFORMATION
  Report Type: 
  Country: None (occurrence: None)
  Receive Date: 20110913
  Receipt Date: 20110207
  Transmission Date: 20111222
  Serious: No
  Sender: FDA-Public Use
  Company Number: US-BAYER-2011-013675

PATIENT
  Age: 57 Year
  Sex: Male
  Weight: 93.4 kg

DRUGS (1)
  1. MAGNEVIST [Suspect]
     Indication: NUCLEAR MAGNETIC RESONANCE IMAGING BRAIN
     Dosage: 19ML IN LEFT ANT CUBITAL, SLOW PUSH BY HAND
     Route: 042
     Dates: start: 20110207, end: 20110207

REACTIONS (2)
  - PRURITUS [None]
  - URTICARIA [None]
